FAERS Safety Report 24372422 (Version 1)
Quarter: 2024Q3

REPORT INFORMATION
  Report Type: Spontaneous
  Country: FR (occurrence: FR)
  Receive Date: 20240927
  Receipt Date: 20240927
  Transmission Date: 20241017
  Serious: Yes (Hospitalization)
  Sender: RANBAXY
  Company Number: FR-SUN PHARMACEUTICAL INDUSTRIES LTD-2024RR-470110

PATIENT
  Age: 17 Year
  Sex: Female
  Weight: 49 kg

DRUGS (1)
  1. ACETAMINOPHEN [Suspect]
     Active Substance: ACETAMINOPHEN
     Indication: Inappropriate schedule of product administration
     Dosage: 12 GRAM
     Route: 048
     Dates: start: 20240521

REACTIONS (4)
  - Accidental overdose [Recovering/Resolving]
  - Inappropriate schedule of product administration [Recovering/Resolving]
  - Jaundice [Recovering/Resolving]
  - Hepatic pain [Recovering/Resolving]

NARRATIVE: CASE EVENT DATE: 20240521
